FAERS Safety Report 4940883-X (Version None)
Quarter: 2006Q1

REPORT INFORMATION
  Report Type: 
  Country: None (occurrence: None)
  Receive Date: 20060313
  Receipt Date: 20060306
  Transmission Date: 20060701
  Serious: Yes (Other)
  Sender: FDA-Public Use
  Company Number: BW-BRISTOL-MYERS SQUIBB COMPANY-13303722

PATIENT
  Age: 40 Year
  Sex: Male

DRUGS (3)
  1. EFAVIRENZ [Suspect]
  2. STAVUDINE [Suspect]
  3. LAMIVUDINE [Suspect]

REACTIONS (1)
  - HYPERTRIGLYCERIDAEMIA [None]
